FAERS Safety Report 10258619 (Version 1)
Quarter: 2014Q2

REPORT INFORMATION
  Report Type: Spontaneous
  Country: TR (occurrence: None)
  Receive Date: 20140623
  Receipt Date: 20140623
  Transmission Date: 20141212
  Serious: Yes (Death, Life-Threatening, Hospitalization)
  Sender: FDA-Public Use
  Company Number: TR2014K2253LIT

PATIENT
  Age: 43 Year
  Sex: Female

DRUGS (1)
  1. LANSOPRAZOLE WORLD (LANSOPRAZOLE) UNKNOWN [Suspect]
     Indication: DYSPEPSIA
     Dosage: 30 MG, SINGLE DOSE

REACTIONS (12)
  - Anaphylactic shock [None]
  - Respiratory arrest [None]
  - Loss of consciousness [None]
  - Hypoxia [None]
  - Cardiac arrest [None]
  - Metabolic acidosis [None]
  - Oliguria [None]
  - Lactic acidosis [None]
  - Hepatic enzyme increased [None]
  - Multi-organ failure [None]
  - Brain oedema [None]
  - Rash [None]
